FAERS Safety Report 20060242 (Version 1)
Quarter: 2021Q4

REPORT INFORMATION
  Report Type: Spontaneous
  Country: US (occurrence: US)
  Receive Date: 20211111
  Receipt Date: 20211111
  Transmission Date: 20220303
  Serious: Yes (Other)
  Sender: FDA-Public Use
  Company Number: US-CELGENE-USA-20211102643

PATIENT
  Age: 50 Year
  Sex: Female
  Weight: 54.026 kg

DRUGS (1)
  1. REVLIMID [Suspect]
     Active Substance: LENALIDOMIDE
     Indication: Plasma cell myeloma
     Dosage: 25 MILLIGRAM
     Route: 048
     Dates: start: 20210802, end: 20211101

REACTIONS (1)
  - Pulmonary thrombosis [Unknown]

NARRATIVE: CASE EVENT DATE: 20211001
